FAERS Safety Report 5736448-2 (Version None)
Quarter: 2008Q2

REPORT INFORMATION
  Report Type: 
  Country: None (occurrence: None)
  Receive Date: 20080513
  Receipt Date: 20080512
  Transmission Date: 20081010
  Serious: Yes (Life-Threatening)
  Sender: FDA-Public Use
  Company Number: B0519811A

PATIENT
  Age: 55 Year
  Sex: Male

DRUGS (2)
  1. AUGMENTIN '125' [Suspect]
     Route: 048
     Dates: start: 20080417, end: 20080417
  2. AUGMENTIN '125' [Concomitant]
     Route: 048
     Dates: start: 20080327, end: 20080402

REACTIONS (11)
  - ABDOMINAL PAIN [None]
  - BACK PAIN [None]
  - CHEST PAIN [None]
  - DYSPNOEA [None]
  - HYPERSENSITIVITY [None]
  - HYPOTENSION [None]
  - OXYGEN SATURATION DECREASED [None]
  - PARAESTHESIA [None]
  - SKIN DISCOLOURATION [None]
  - TACHYCARDIA [None]
  - TREMOR [None]
